FAERS Safety Report 9148827 (Version 1)
Quarter: 2013Q1

REPORT INFORMATION
  Report Type: Spontaneous
  Country: US (occurrence: US)
  Receive Date: 20130308
  Receipt Date: 20130308
  Transmission Date: 20140127
  Serious: Yes (Hospitalization, Other)
  Sender: FDA-Public Use
  Company Number: PHEH2013US005454

PATIENT
  Age: 30 Year
  Sex: Female

DRUGS (1)
  1. TOBI [Suspect]
     Indication: INFECTIVE PULMONARY EXACERBATION OF CYSTIC FIBROSIS
     Dosage: 300 MG, BID
     Dates: start: 200001

REACTIONS (1)
  - Pneumonia [Recovering/Resolving]
